FAERS Safety Report 4801918-8 (Version None)
Quarter: 2005Q4

REPORT INFORMATION
  Report Type: 
  Country: None (occurrence: None)
  Receive Date: 20051012
  Receipt Date: 20050927
  Transmission Date: 20060501
  Serious: Yes (Disabling)
  Sender: FDA-Public Use
  Company Number: 2005-BP-17077RO

PATIENT
  Age: 32 Year
  Sex: Female

DRUGS (4)
  1. METHOTREXATE [Suspect]
     Dosage: NR (2.5 MG, 1 IN 1 WK), PO
     Route: 048
     Dates: start: 20040201
  2. PANTOPRAZOLE SODIUM [Suspect]
     Dosage: (NR), PO
     Route: 048
  3. TRANXENE [Suspect]
     Dosage: 50 MG DAILY (NR), PO
     Route: 048
     Dates: start: 20040201
  4. PAROXETINE HCL [Suspect]
     Dosage: PO
     Route: 048

REACTIONS (1)
  - VISUAL FIELD DEFECT [None]
